FAERS Safety Report 4615524-1 (Version None)
Quarter: 2005Q1

REPORT INFORMATION
  Report Type: 
  Country: None (occurrence: None)
  Receive Date: 20050317
  Receipt Date: 20050307
  Transmission Date: 20050727
  Serious: Yes (Hospitalization, Other)
  Sender: FDA-Public Use
  Company Number: HQWYE886208MAR05

PATIENT
  Sex: Female
  Weight: 54.48 kg

DRUGS (2)
  1. PROTONIX [Suspect]
     Dosage: 40 MG
  2. EFFEXOR XR [Concomitant]

REACTIONS (5)
  - AMNESIA [None]
  - DELIRIUM [None]
  - FALL [None]
  - HALLUCINATION [None]
  - ROAD TRAFFIC ACCIDENT [None]
